FAERS Safety Report 6908283-0 (Version None)
Quarter: 2010Q3

REPORT INFORMATION
  Report Type: 
  Country: None (occurrence: None)
  Receive Date: 20100805
  Receipt Date: 20100723
  Transmission Date: 20110219
  Serious: No
  Sender: FDA-Public Use
  Company Number: TR-ROCHE-717752

PATIENT
  Sex: Female

DRUGS (2)
  1. ISOTRETINOIN [Suspect]
     Indication: ACNE
     Route: 048
     Dates: start: 20091001, end: 20100501
  2. ISOTRETINOIN [Suspect]
     Dosage: FOR ONE MONTH FREQUENCY: EVERY OTHER DAY.
     Route: 048
     Dates: start: 20100501, end: 20100601

REACTIONS (2)
  - NO ADVERSE EVENT [None]
  - PREGNANCY [None]
